FAERS Safety Report 9243541 (Version 1)
Quarter: 2013Q1

REPORT INFORMATION
  Report Type: Spontaneous
  Country: US (occurrence: None)
  Receive Date: 20121123
  Receipt Date: 20121123
  Transmission Date: 20140127
  Serious: Yes (Other)
  Sender: FDA-Public Use
  Company Number: 358704

PATIENT
  Sex: Male

DRUGS (4)
  1. VICTOZA [Suspect]
     Indication: DIABETES MELLITUS
     Route: 058
     Dates: start: 20120510, end: 20120718
  2. LEVEMIR (INSULIN DETEMIR) SOLUTION FOR INJECTION, 0.0024MOL/L [Concomitant]
  3. AMBIEN (ZOLPIDEM TARTRATE) [Concomitant]
  4. QUINAPRIL (QUINAPRIL) [Concomitant]

REACTIONS (1)
  - Pancreatitis [None]
